FAERS Safety Report 5508562-8 (Version None)
Quarter: 2007Q4

REPORT INFORMATION
  Report Type: 
  Country: None (occurrence: None)
  Receive Date: 20071031
  Receipt Date: 20070712
  Transmission Date: 20080405
  Serious: No
  Sender: FDA-Public Use
  Company Number: 2007PV033137

PATIENT
  Age: 66 Year
  Sex: Female

DRUGS (2)
  1. SYMLIN [Suspect]
     Indication: DRUG USE FOR UNKNOWN INDICATION
     Dosage: ;SC
     Route: 058
  2. BYETTA [Concomitant]

REACTIONS (1)
  - INJECTION SITE BRUISING [None]
